FAERS Safety Report 20137005 (Version 3)
Quarter: 2022Q1

REPORT INFORMATION
  Report Type: Spontaneous
  Country: UZ (occurrence: UZ)
  Receive Date: 20211201
  Receipt Date: 20220124
  Transmission Date: 20220423
  Serious: Yes (Other)
  Sender: FDA-Public Use
  Company Number: UZ-NOVARTISPH-NVSC2021UZ272798

PATIENT
  Sex: Male
  Weight: 112 kg

DRUGS (7)
  1. SECUKINUMAB [Suspect]
     Active Substance: SECUKINUMAB
     Indication: Psoriasis
     Dosage: 300 MG, (1,2,3,4,5 WEEK, THEN 1 TIME PER MONTH)
     Route: 058
     Dates: start: 20210527
  2. SECUKINUMAB [Suspect]
     Active Substance: SECUKINUMAB
     Dosage: UNK
     Route: 065
     Dates: start: 20210618
  3. SECUKINUMAB [Suspect]
     Active Substance: SECUKINUMAB
     Dosage: 2 DOSAGE FORM
     Route: 065
     Dates: start: 20210719
  4. SECUKINUMAB [Suspect]
     Active Substance: SECUKINUMAB
     Dosage: 2 DOSAGE FORM
     Route: 065
     Dates: start: 20210819
  5. SECUKINUMAB [Suspect]
     Active Substance: SECUKINUMAB
     Dosage: 2 DOSAGE FORM
     Route: 065
     Dates: start: 20210919
  6. SECUKINUMAB [Suspect]
     Active Substance: SECUKINUMAB
     Dosage: 2 DOSAGE FORM
     Route: 065
     Dates: start: 20211021
  7. GLUTATHIONE [Concomitant]
     Active Substance: GLUTATHIONE
     Indication: Product used for unknown indication
     Dosage: 10
     Route: 042

REACTIONS (9)
  - Rash [Not Recovered/Not Resolved]
  - Feeling abnormal [Unknown]
  - Skin haemorrhage [Unknown]
  - Pruritus [Unknown]
  - Erythema [Unknown]
  - Condition aggravated [Unknown]
  - Anamnestic reaction [Unknown]
  - Skin plaque [Unknown]
  - Psoriasis [Unknown]

NARRATIVE: CASE EVENT DATE: 20211101
